FAERS Safety Report 5674830-2 (Version None)
Quarter: 2008Q1

REPORT INFORMATION
  Report Type: 
  Country: None (occurrence: None)
  Receive Date: 20080319
  Receipt Date: 20080319
  Transmission Date: 20080703
  Serious: Yes (Disabling)
  Sender: FDA-Public Use
  Company Number: None

PATIENT
  Age: 58 Year
  Sex: Female
  Weight: 47.1741 kg

DRUGS (1)
  1. ACTONEL [Suspect]
     Indication: OSTEOPOROSIS
     Dosage: ONCE WEEKLY
     Dates: start: 19960601, end: 20070901

REACTIONS (8)
  - GINGIVAL BLEEDING [None]
  - GINGIVAL RECESSION [None]
  - INFECTION [None]
  - JAW DISORDER [None]
  - LOOSE TOOTH [None]
  - MOUTH HAEMORRHAGE [None]
  - OEDEMA MOUTH [None]
  - ORAL PAIN [None]
